FAERS Safety Report 18087236 (Version 1)
Quarter: 2020Q3

REPORT INFORMATION
  Report Type: Spontaneous
  Country: CN (occurrence: CN)
  Receive Date: 20200729
  Receipt Date: 20200729
  Transmission Date: 20201103
  Serious: Yes (Other)
  Sender: FDA-Public Use
  Company Number: CN-ASTRAZENECA-2020SE93718

PATIENT
  Age: 24757 Day
  Sex: Female

DRUGS (5)
  1. AMOXICILLIN. [Concomitant]
     Active Substance: AMOXICILLIN
     Dosage: FOUR PIECES, TWICE/DAY (AFTER BREAKFAST AND AFTER DINNER)
     Route: 048
  2. BISMUTH POTASSIUM CITRATE [Concomitant]
     Dosage: TWO PIECES, TWICE/DAY (HALF AN HOUR BEFORE LUNCH, AFTER DINNER)
     Route: 048
  3. NEXIUM [Suspect]
     Active Substance: ESOMEPRAZOLE MAGNESIUM
     Indication: HELICOBACTER INFECTION
     Dosage: ONE TABLET, ONCE/DAY (HALF AN HOUR BEFORE DINNER)
     Route: 048
     Dates: start: 20200623, end: 20200625
  4. FURAZOLIDONE [Concomitant]
     Active Substance: FURAZOLIDONE
     Dosage: ONE TABLET ORAL TWICE/DAY (AFTER BREAKFAST AND AFTER DINNER)
     Route: 048
  5. PANTOPRAZOLE SODIUM. [Concomitant]
     Active Substance: PANTOPRAZOLE SODIUM
     Route: 042

REACTIONS (3)
  - Lip oedema [Recovered/Resolved]
  - Tongue disorder [Recovered/Resolved]
  - Hypoaesthesia oral [Recovered/Resolved]

NARRATIVE: CASE EVENT DATE: 20200623
